FAERS Safety Report 7803488-9 (Version None)
Quarter: 2011Q4

REPORT INFORMATION
  Report Type: 
  Country: None (occurrence: None)
  Receive Date: 20111007
  Receipt Date: 20110922
  Transmission Date: 20120403
  Serious: Yes (Other)
  Sender: FDA-Public Use
  Company Number: JP-ROCHE-799012

PATIENT
  Age: 49 Year
  Sex: Female
  Weight: 52 kg

DRUGS (14)
  1. PYDOXAL [Concomitant]
     Route: 048
     Dates: start: 20100310
  2. GLYCYRON [Concomitant]
     Route: 048
  3. HERCEPTIN [Suspect]
     Dosage: REST BY ADMINISTERING 2W A WEEK
     Route: 041
     Dates: start: 20100401
  4. HERCEPTIN [Suspect]
     Indication: BREAST CANCER METASTATIC
     Route: 041
     Dates: start: 20100407
  5. PRAVASTATIN SODIUM [Concomitant]
     Route: 048
     Dates: start: 20100310, end: 20110201
  6. ETHYL ICOSAPENTATE [Concomitant]
     Route: 048
     Dates: start: 20110824
  7. SALOBEL [Concomitant]
     Route: 048
     Dates: start: 20110824
  8. XELODA [Suspect]
     Dosage: IT WAS ONE ADMINISTERING WEEKLY HOLIDAY MEDICINE FOR TWO WEEKS.
     Route: 048
     Dates: start: 20100311, end: 20100512
  9. BEZATOL SR [Concomitant]
     Route: 048
     Dates: start: 20110202
  10. XELODA [Suspect]
     Indication: BREAST CANCER METASTATIC
     Dosage: NOTE: IT WAS ONE ADMINISTERING WEEKLY HOLIDAY MEDICINE FOR TWO WEEKS.
     Route: 048
  11. XELODA [Suspect]
     Dosage: IT WAS ONE ADMINISTERING WEEKLY HOLIDAY MEDICINE FOR TWO WEEKS
     Route: 048
     Dates: start: 20100601, end: 20110425
  12. XELODA [Suspect]
     Dosage: IT WAS ONE ADMINISTERING WEEKLY HOLIDAY MEDICINE FOR TWO WEEKS
     Route: 048
  13. ZETIA [Concomitant]
     Route: 048
     Dates: start: 20110223
  14. BROTIZOLAM [Concomitant]
     Dosage: A DOSE
     Route: 048
     Dates: start: 20100408

REACTIONS (2)
  - HYPERTRIGLYCERIDAEMIA [None]
  - HYPERURICAEMIA [None]
